FAERS Safety Report 8548527 (Version 2)
Quarter: 2012Q4

REPORT INFORMATION
  Report Type: 
  Country: US (occurrence: US)
  Receive Date: 20120507
  Receipt Date: 20120907
  Transmission Date: 20130627
  Serious: Yes (Hospitalization, Other)
  Sender: FDA-Public Use
  Company Number: US-BAYER-2012-042499

PATIENT
  Age: 31 Year
  Sex: Female
  Weight: 104.31 kg

DRUGS (9)
  1. YAZ [Suspect]
     Indication: CONTRACEPTION
     Dosage: UNK
     Dates: start: 2007, end: 20080821
  2. YASMIN [Suspect]
     Indication: CONTRACEPTION
     Dosage: UNK
     Dates: start: 2003
  3. LEXAPRO [Concomitant]
     Indication: ANXIETY
     Dosage: 10 mg, UNK
     Dates: start: 2007, end: 2010
  4. METFORMIN [Concomitant]
     Indication: POLYCYSTIC OVARIES
     Dosage: UNK
     Dates: start: 2007, end: 2010
  5. BUSPIRONE [Concomitant]
     Indication: ANXIETY
     Dosage: 15 mg, UNK
     Dates: start: 2007, end: 2008
  6. PANTOPRAZOLE [Concomitant]
     Dosage: 40 mg, UNK
     Dates: start: 20080428, end: 20080706
  7. OXYCODONE/APAP [Concomitant]
     Dosage: 5-500mg, UNK
     Dates: start: 20080608, end: 20080805
  8. TYLOX [Concomitant]
     Indication: PAIN
     Dosage: 5-500mg Q 6 hrs prn (every 6 hours as needed)
  9. FEMCON FE [Concomitant]

REACTIONS (7)
  - Pulmonary embolism [Recovered/Resolved]
  - Deep vein thrombosis [None]
  - Arthralgia [None]
  - Injury [None]
  - Pain [None]
  - Dyspnoea [Recovered/Resolved]
  - Pleuritic pain [Recovered/Resolved]
